FAERS Safety Report 7961147-6 (Version None)
Quarter: 2011Q4

REPORT INFORMATION
  Report Type: 
  Country: None (occurrence: None)
  Receive Date: 20111207
  Receipt Date: 20111205
  Transmission Date: 20120403
  Serious: Yes (Other)
  Sender: FDA-Public Use
  Company Number: US-PFIZER INC-2011295677

PATIENT
  Sex: Female
  Weight: 90.703 kg

DRUGS (5)
  1. VENTOLIN [Concomitant]
     Indication: ASTHMA
     Dosage: UNK
  2. BISEPTOL [Concomitant]
     Indication: SYSTEMIC LUPUS ERYTHEMATOSUS
     Dosage: UNK
  3. LEVOTHYROXINE [Concomitant]
     Indication: HYPOTHYROIDISM
     Dosage: UNK
  4. IBUPROFEN (ADVIL) [Suspect]
     Indication: PAIN
     Dosage: 200 MG, AS NEEDED
     Route: 048
  5. ATIVAN [Concomitant]
     Indication: PANIC DISORDER
     Dosage: UNK

REACTIONS (9)
  - DYSPNOEA [None]
  - FATIGUE [None]
  - SENSORY DISTURBANCE [None]
  - INCORRECT DOSE ADMINISTERED [None]
  - DYSSTASIA [None]
  - DYSMENORRHOEA [None]
  - MUSCULOSKELETAL DISCOMFORT [None]
  - PALPITATIONS [None]
  - BACK PAIN [None]
